FAERS Safety Report 9733198 (Version 2)
Quarter: 2014Q1

REPORT INFORMATION
  Report Type: Spontaneous
  Country: JP (occurrence: JP)
  Receive Date: 20131205
  Receipt Date: 20140129
  Transmission Date: 20141002
  Serious: Yes (Other)
  Sender: FDA-Public Use
  Company Number: PHHY2013JP138846

PATIENT
  Age: 63 Year
  Sex: Male

DRUGS (6)
  1. NEORAL [Suspect]
     Indication: PSORIASIS
     Dosage: 200 MG, UNK
     Route: 048
     Dates: start: 201107, end: 201201
  2. NEORAL [Suspect]
     Dosage: 150 MG
     Route: 048
  3. NEORAL [Suspect]
     Dosage: 50 MG
  4. MEXILETINE [Suspect]
     Indication: NEURALGIA
     Route: 048
     Dates: start: 201111
  5. ETRETINATE [Concomitant]
     Indication: PSORIASIS
     Route: 048
     Dates: start: 201102
  6. ADRENAL HORMONE PREPARATIONS [Concomitant]
     Route: 062
     Dates: start: 201102

REACTIONS (14)
  - Drug reaction with eosinophilia and systemic symptoms [Unknown]
  - Lymphocytic infiltration [Unknown]
  - Generalised erythema [Recovered/Resolved]
  - Skin exfoliation [Unknown]
  - Pyrexia [Unknown]
  - Rash pustular [Unknown]
  - Eosinophilia [Unknown]
  - Hepatic enzyme increased [Unknown]
  - White blood cell count increased [Unknown]
  - Dermatitis exfoliative [Recovered/Resolved]
  - Lymphadenopathy [Unknown]
  - Diabetes mellitus [Unknown]
  - Human herpesvirus 6 infection [Unknown]
  - Renal impairment [Unknown]
